FAERS Safety Report 6559280-9 (Version None)
Quarter: 2010Q1

REPORT INFORMATION
  Report Type: 
  Country: None (occurrence: None)
  Receive Date: 20100129
  Receipt Date: 20100119
  Transmission Date: 20100710
  Serious: Yes (Life-Threatening, Hospitalization, Other)
  Sender: FDA-Public Use
  Company Number: SI-ABBOTT-10P-261-0620249-00

PATIENT
  Sex: Female

DRUGS (2)
  1. TARKA [Suspect]
     Indication: HYPERTENSION
     Dosage: 240/4 MG ONCE PER DAY
     Route: 048
     Dates: start: 20091224, end: 20091227
  2. INDAPAMIDE [Concomitant]
     Indication: DRUG USE FOR UNKNOWN INDICATION
     Route: 048

REACTIONS (7)
  - BRADYCARDIA [None]
  - CARDIAC FAILURE [None]
  - HEPATIC ISCHAEMIA [None]
  - NODAL RHYTHM [None]
  - RENAL FAILURE CHRONIC [None]
  - SINUS ARREST [None]
  - TRANSAMINASES INCREASED [None]
